FAERS Safety Report 7780552-4 (Version None)
Quarter: 2011Q3

REPORT INFORMATION
  Report Type: 
  Country: None (occurrence: None)
  Receive Date: 20110927
  Receipt Date: 20110321
  Transmission Date: 20111222
  Serious: No
  Sender: FDA-Public Use
  Company Number: US-ASTRAZENECA-2011SE15786

PATIENT
  Age: 48 Year
  Sex: Male
  Weight: 73.9 kg

DRUGS (6)
  1. SEROQUEL [Suspect]
     Indication: SLEEP DISORDER
     Route: 048
  2. SEROQUEL [Suspect]
     Dosage: 100 MG TABLET CUT IN HALF WITH A 100 MG TABLET
     Route: 048
     Dates: start: 20100801
  3. MELATONIN [Concomitant]
     Indication: SLEEP DISORDER
  4. VALERIAN [Concomitant]
     Indication: SLEEP DISORDER
  5. LISINOPRIL [Concomitant]
     Indication: HYPERTENSION
  6. METOPROLOL TARTRATE [Suspect]
     Route: 048

REACTIONS (7)
  - WRONG TECHNIQUE IN DRUG USAGE PROCESS [None]
  - INCORRECT DOSE ADMINISTERED [None]
  - OFF LABEL USE [None]
  - INSOMNIA [None]
  - HEADACHE [None]
  - DRUG DOSE OMISSION [None]
  - DRUG INEFFECTIVE FOR UNAPPROVED INDICATION [None]
